FAERS Safety Report 23951308 (Version 6)
Quarter: 2024Q3

REPORT INFORMATION
  Report Type: Spontaneous
  Country: CA (occurrence: CA)
  Receive Date: 20240607
  Receipt Date: 20240910
  Transmission Date: 20241017
  Serious: Yes (Life-Threatening, Hospitalization, Other)
  Sender: PFIZER
  Company Number: CA-PFIZER INC-202400184286

PATIENT
  Age: 56 Year
  Sex: Female

DRUGS (8)
  1. XELJANZ XR [Suspect]
     Active Substance: TOFACITINIB CITRATE
     Indication: Rheumatoid arthritis
     Dosage: 11MG, 1X/DAY
     Route: 048
     Dates: start: 20240327, end: 20240526
  2. XELJANZ XR [Suspect]
     Active Substance: TOFACITINIB CITRATE
     Dosage: 11MG, 1X/DAY
     Route: 048
     Dates: start: 202406, end: 2024
  3. MYCOPHENOLIC ACID [Concomitant]
     Active Substance: MYCOPHENOLIC ACID
     Indication: Muscular weakness
     Dosage: 5MG, 2X/DAY
     Dates: end: 2024
  4. MYCOPHENOLIC ACID [Concomitant]
     Active Substance: MYCOPHENOLIC ACID
     Indication: Dermatomyositis
     Dosage: 1500 MG, 2X/DAY
     Dates: end: 2024
  5. MYCOPHENOLIC ACID [Concomitant]
     Active Substance: MYCOPHENOLIC ACID
     Dosage: 1000 MG, 2X/DAY
  6. PREDNISONE [Concomitant]
     Active Substance: PREDNISONE
     Dosage: 20 MG, DAILY
     Route: 048
  7. TRAZODONE [Concomitant]
     Active Substance: TRAZODONE HYDROCHLORIDE
     Dosage: 50 MG, DAILY BEFORE SLEEP
  8. VACCINIA IMMUNE GLOBULIN HUMAN [Concomitant]
     Active Substance: VACCINIA IMMUNE GLOBULIN HUMAN
     Indication: Dermatomyositis
     Dosage: UNK, MONTHLY

REACTIONS (14)
  - Pneumonia staphylococcal [Recovered/Resolved]
  - Respiratory failure [Recovered/Resolved]
  - Blood creatine decreased [Unknown]
  - Back pain [Unknown]
  - Headache [Not Recovered/Not Resolved]
  - Feeling hot [Unknown]
  - Pain [Not Recovered/Not Resolved]
  - Chills [Not Recovered/Not Resolved]
  - Insomnia [Not Recovered/Not Resolved]
  - Decreased appetite [Not Recovered/Not Resolved]
  - Dizziness [Unknown]
  - Chest pain [Unknown]
  - Nausea [Unknown]
  - Arthralgia [Not Recovered/Not Resolved]

NARRATIVE: CASE EVENT DATE: 20240101
